FAERS Safety Report 16759155 (Version 2)
Quarter: 2019Q3

REPORT INFORMATION
  Report Type: Spontaneous
  Country: US (occurrence: US)
  Receive Date: 20190830
  Receipt Date: 20190903
  Transmission Date: 20191005
  Serious: No
  Sender: FDA-Public Use
  Company Number: US-JNJFOC-20190833914

PATIENT
  Age: 64 Year
  Sex: Female

DRUGS (5)
  1. PARACETAMOL [Suspect]
     Active Substance: ACETAMINOPHEN
     Indication: PRODUCT USED FOR UNKNOWN INDICATION
     Route: 065
  2. TYLENOL WITH CODEINE [Suspect]
     Active Substance: ACETAMINOPHEN\CODEINE PHOSPHATE
     Indication: PRODUCT USED FOR UNKNOWN INDICATION
     Route: 065
  3. NICOTINE. [Suspect]
     Active Substance: NICOTINE
     Dosage: I HAD 2 SPRAY THIS MORNING
     Route: 065
  4. NICOTINE. [Suspect]
     Active Substance: NICOTINE
     Indication: SMOKING CESSATION THERAPY
     Route: 065
  5. NICOTINE. [Suspect]
     Active Substance: NICOTINE
     Dosage: I DID 3 NASAL SPRAYS I THINK, 3 NASAL SPRAYS THROUGH THIS MORNING AND 1 WHEN I CAME BACK
     Route: 065

REACTIONS (9)
  - Joint swelling [Recovered/Resolved]
  - Gait inability [Unknown]
  - Peripheral swelling [Unknown]
  - Headache [Unknown]
  - Decreased appetite [Unknown]
  - Pain in extremity [Recovered/Resolved]
  - Labelled drug-drug interaction medication error [Unknown]
  - Malaise [Unknown]
  - Dizziness [Unknown]
